FAERS Safety Report 13790550 (Version 1)
Quarter: 2017Q3

REPORT INFORMATION
  Report Type: Spontaneous
  Country: JP (occurrence: JP)
  Receive Date: 20170725
  Receipt Date: 20170725
  Transmission Date: 20171127
  Serious: Yes (Other)
  Sender: FDA-Public Use
  Company Number: JP-BAYER-2017-142136

PATIENT
  Age: 70 Year
  Sex: Male

DRUGS (6)
  1. XOFIGO [Suspect]
     Active Substance: RADIUM RA-223 DICHLORIDE
     Indication: HORMONE-REFRACTORY PROSTATE CANCER
     Dosage: UNK
  2. CALCIUM [CALCIUM] [Concomitant]
     Active Substance: CALCIUM
     Dosage: UNK
  3. CALCIUM [CALCIUM] [Concomitant]
     Active Substance: CALCIUM
     Dosage: UNK
  4. XOFIGO [Suspect]
     Active Substance: RADIUM RA-223 DICHLORIDE
     Indication: HORMONE-REFRACTORY PROSTATE CANCER
     Dosage: UNK
  5. CALCIUM [CALCIUM] [Concomitant]
     Active Substance: CALCIUM
  6. CALCIUM [CALCIUM] [Concomitant]
     Active Substance: CALCIUM
     Dosage: UNK

REACTIONS (1)
  - Hormone-refractory prostate cancer [None]
